FAERS Safety Report 22522333 (Version 3)
Quarter: 2023Q2

REPORT INFORMATION
  Report Type: Report from Study
  Country: US (occurrence: US)
  Receive Date: 20230605
  Receipt Date: 20230629
  Transmission Date: 20230721
  Serious: No
  Sender: FDA-Public Use
  Company Number: US-002147023-NVSC2023US124703

PATIENT
  Sex: Female

DRUGS (1)
  1. ENTRESTO [Suspect]
     Active Substance: SACUBITRIL\VALSARTAN
     Indication: Product used for unknown indication
     Dosage: 97/103 MG (1 DOSAGE FORM, BID)
     Route: 048
     Dates: start: 202305

REACTIONS (3)
  - Feeling abnormal [Unknown]
  - Rhinorrhoea [Unknown]
  - Blood pressure decreased [Recovering/Resolving]
